FAERS Safety Report 24528746 (Version 1)
Quarter: 2024Q4

REPORT INFORMATION
  Report Type: Spontaneous
  Country: US (occurrence: US)
  Receive Date: 20241021
  Receipt Date: 20241021
  Transmission Date: 20250114
  Serious: No
  Sender: PERRIGO
  Company Number: US-PERRIGO-24US002739

PATIENT
  Age: 1 Year
  Sex: Male

DRUGS (1)
  1. UNISOM SLEEPTABS [Suspect]
     Active Substance: DOXYLAMINE SUCCINATE
     Indication: Accidental exposure to product by child
     Dosage: 25 MG, SINGLE
     Route: 048
     Dates: start: 20240314, end: 20240314

REACTIONS (2)
  - Accidental exposure to product by child [Unknown]
  - Expired product administered [Unknown]

NARRATIVE: CASE EVENT DATE: 20240314
